FAERS Safety Report 23778337 (Version 1)
Quarter: 2024Q2

REPORT INFORMATION
  Report Type: Spontaneous
  Country: US (occurrence: None)
  Receive Date: 20240423
  Receipt Date: 20240423
  Transmission Date: 20240716
  Serious: Yes (Hospitalization)
  Sender: FDA-Public Use
  Company Number: None

PATIENT
  Age: 60 Year
  Sex: Male
  Weight: 72 kg

DRUGS (1)
  1. LETROZOLE [Suspect]
     Active Substance: LETROZOLE
     Indication: Invasive ductal breast carcinoma
     Dosage: OTHER FREQUENCY : AM;?
     Route: 048
     Dates: start: 20230125, end: 20230130

REACTIONS (3)
  - Arthralgia [None]
  - Asthenia [None]
  - Brain fog [None]

NARRATIVE: CASE EVENT DATE: 20230406
